FAERS Safety Report 10757509 (Version 1)
Quarter: 2015Q1

REPORT INFORMATION
  Report Type: Spontaneous
  Country: US (occurrence: None)
  Receive Date: 20150130
  Receipt Date: 20150130
  Transmission Date: 20150721
  Serious: Yes (Hospitalization)
  Sender: FDA-Public Use
  Company Number: 8006705

PATIENT
  Sex: Female

DRUGS (1)
  1. NOVOTHYRAL (NOVOTHYRAL) (LEVOTHYROXINE SODIUM, LIOTHYRONINE SODIUM) [Suspect]
     Active Substance: LEVOTHYROXINE SODIUM\LIOTHYRONINE SODIUM
     Indication: THYROID DISORDER

REACTIONS (2)
  - Unevaluable event [None]
  - Hospitalisation [None]
